FAERS Safety Report 24862636 (Version 1)
Quarter: 2025Q1

REPORT INFORMATION
  Report Type: Spontaneous
  Country: US (occurrence: US)
  Receive Date: 20250120
  Receipt Date: 20250120
  Transmission Date: 20250409
  Serious: No
  Sender: Kenvue
  Company Number: US-KENVUE-20241206601

PATIENT
  Sex: Male

DRUGS (13)
  1. IMODIUM [Suspect]
     Active Substance: LOPERAMIDE HYDROCHLORIDE
     Indication: Diarrhoea
     Route: 065
  2. OFEV [Concomitant]
     Active Substance: NINTEDANIB
     Indication: Idiopathic pulmonary fibrosis
     Dosage: 100 MILLIGRAM, TWICE A DAY
     Route: 048
     Dates: start: 20240415
  3. OFEV [Concomitant]
     Active Substance: NINTEDANIB
     Dosage: 100 MILLIGRAM, TWICE A DAY
     Route: 048
  4. OFEV [Concomitant]
     Active Substance: NINTEDANIB
     Dosage: 100 MILLIGRAM, TWICE A DAY
     Route: 048
  5. OFEV [Concomitant]
     Active Substance: NINTEDANIB
     Dosage: 100 MILLIGRAM, TWICE A DAY
     Route: 048
  6. OFEV [Concomitant]
     Active Substance: NINTEDANIB
     Dosage: 100 MILLIGRAM, TWICE A DAY
     Route: 048
  7. SILDENAFIL [Concomitant]
     Active Substance: SILDENAFIL
     Indication: Product used for unknown indication
     Route: 065
  8. TYVASO [Concomitant]
     Active Substance: TREPROSTINIL
     Indication: Product used for unknown indication
     Route: 065
  9. AMLODIPINE [Concomitant]
     Active Substance: AMLODIPINE BESYLATE
     Indication: Product used for unknown indication
     Route: 065
  10. HYDROCORTISONE [Concomitant]
     Active Substance: HYDROCORTISONE
     Indication: Product used for unknown indication
     Route: 065
  11. AZITHROMYCIN ANHYDROUS [Concomitant]
     Active Substance: AZITHROMYCIN ANHYDROUS
     Indication: Atypical pneumonia
     Route: 065
  12. PREDNISONE [Concomitant]
     Active Substance: PREDNISONE
     Indication: Atypical pneumonia
     Route: 065
  13. OXYGEN [Concomitant]
     Active Substance: OXYGEN
     Indication: Pulmonary fibrosis
     Route: 065

REACTIONS (1)
  - Constipation [Unknown]

NARRATIVE: CASE EVENT DATE: 20240101
